FAERS Safety Report 15705187 (Version 2)
Quarter: 2018Q4

REPORT INFORMATION
  Report Type: Spontaneous
  Country: US (occurrence: US)
  Receive Date: 20181210
  Receipt Date: 20181211
  Transmission Date: 20190205
  Serious: Yes (Hospitalization)
  Sender: FDA-Public Use
  Company Number: US-US WORLDMEDS, LLC-USW201811-001705

PATIENT

DRUGS (1)
  1. LUCEMYRA [Suspect]
     Active Substance: LOFEXIDINE

REACTIONS (1)
  - Adverse reaction [Unknown]
